FAERS Safety Report 16731807 (Version 2)
Quarter: 2019Q3

REPORT INFORMATION
  Report Type: Report from Study
  Country: CA (occurrence: CA)
  Receive Date: 20190822
  Receipt Date: 20190905
  Transmission Date: 20191005
  Serious: Yes (Other)
  Sender: FDA-Public Use
  Company Number: CA-JNJFOC-20190536814

PATIENT
  Age: 64 Year
  Sex: Female
  Weight: 72 kg

DRUGS (4)
  1. REMICADE [Suspect]
     Active Substance: INFLIXIMAB
     Indication: CROHN^S DISEASE
     Route: 042
     Dates: start: 20190509
  2. REMICADE [Suspect]
     Active Substance: INFLIXIMAB
     Route: 042
  3. IMURAN [Concomitant]
     Active Substance: AZATHIOPRINE
     Route: 048
  4. REMICADE [Suspect]
     Active Substance: INFLIXIMAB
     Route: 042

REACTIONS (6)
  - Haemorrhoidal haemorrhage [Not Recovered/Not Resolved]
  - Headache [Not Recovered/Not Resolved]
  - Oral candidiasis [Recovering/Resolving]
  - Menopausal symptoms [Unknown]
  - Crohn^s disease [Not Recovered/Not Resolved]
  - Palpitations [Not Recovered/Not Resolved]

NARRATIVE: CASE EVENT DATE: 20190522
